FAERS Safety Report 5929831-3 (Version None)
Quarter: 2008Q4

REPORT INFORMATION
  Report Type: 
  Country: None (occurrence: None)
  Receive Date: 20081024
  Receipt Date: 20081013
  Transmission Date: 20090506
  Serious: Yes (Other)
  Sender: FDA-Public Use
  Company Number: US-PFIZER INC-2007060136

PATIENT
  Sex: Female
  Weight: 138.8 kg

DRUGS (2)
  1. AROMASIN [Suspect]
     Indication: BREAST CANCER
     Route: 048
     Dates: start: 20070101
  2. NORVASC [Concomitant]
     Indication: HYPERTENSION

REACTIONS (7)
  - ARTHRITIS [None]
  - BLOOD CHOLESTEROL INCREASED [None]
  - DYSPNOEA [None]
  - HYPERSENSITIVITY [None]
  - OSTEOPOROSIS [None]
  - RASH PRURITIC [None]
  - URTICARIA [None]
